FAERS Safety Report 8448970-9 (Version None)
Quarter: 2012Q2

REPORT INFORMATION
  Report Type: 
  Country: None (occurrence: None)
  Receive Date: 20120613
  Receipt Date: 20120529
  Transmission Date: 20120825
  Serious: Yes (Congenital Anomaly)
  Sender: FDA-Public Use
  Company Number: 2012-00695

PATIENT
  Weight: 2.54 kg

DRUGS (1)
  1. QUETIAPINE [Suspect]
     Indication: PERSONALITY DISORDER
     Dosage: TRANSPLACENTAL
     Route: 064

REACTIONS (3)
  - CLEFT PALATE [None]
  - CLEFT LIP [None]
  - FOETAL EXPOSURE DURING PREGNANCY [None]
